FAERS Safety Report 9281825 (Version 1)
Quarter: 2013Q2

REPORT INFORMATION
  Report Type: Spontaneous
  Country: US (occurrence: US)
  Receive Date: 20130510
  Receipt Date: 20130510
  Transmission Date: 20140414
  Serious: Yes (Death)
  Sender: FDA-Public Use
  Company Number: US-ROCHE-1210755

PATIENT
  Age: 47 Year
  Sex: Female
  Weight: 131.21 kg

DRUGS (5)
  1. XOLAIR [Suspect]
     Indication: ASTHMA
     Route: 058
     Dates: start: 20110810, end: 20130402
  2. ACCOLATE [Concomitant]
     Route: 065
  3. ALLERGY SHOTS [Concomitant]
  4. DIFLUCAN [Concomitant]
     Route: 065
  5. PREDNISONE [Concomitant]
     Route: 065

REACTIONS (1)
  - Breast cancer recurrent [Fatal]
